FAERS Safety Report 4284549-0 (Version None)
Quarter: 2004Q1

REPORT INFORMATION
  Report Type: 
  Country: None (occurrence: None)
  Receive Date: 20040130
  Receipt Date: 20040113
  Transmission Date: 20041129
  Serious: Yes (Other)
  Sender: FDA-Public Use
  Company Number: USA031254524

PATIENT
  Age: 61 Year
  Sex: Female

DRUGS (2)
  1. XIGRIS [Suspect]
     Indication: ACUTE RESPIRATORY DISTRESS SYNDROME
     Dosage: 24 UG/KG/HR
     Dates: start: 20031101, end: 20031101
  2. XIGRIS [Suspect]
     Indication: SEPTIC SHOCK
     Dosage: 24 UG/KG/HR
     Dates: start: 20031101, end: 20031101

REACTIONS (2)
  - HAEMATOCRIT DECREASED [None]
  - HAEMORRHAGE [None]
